FAERS Safety Report 10342275 (Version 2)
Quarter: 2014Q3

REPORT INFORMATION
  Report Type: Spontaneous
  Country: FR (occurrence: FR)
  Receive Date: 20140725
  Receipt Date: 20140820
  Transmission Date: 20150326
  Serious: Yes (Hospitalization, Other)
  Sender: FDA-Public Use
  Company Number: FR-JNJFOC-20140709992

PATIENT

DRUGS (2)
  1. ARIPIPRAZOLE [Suspect]
     Active Substance: ARIPIPRAZOLE
     Indication: PRODUCT USED FOR UNKNOWN INDICATION
     Dosage: 7.5 +- 2.4 MG/D
     Route: 065
  2. RISPERIDONE. [Suspect]
     Active Substance: RISPERIDONE
     Indication: PRODUCT USED FOR UNKNOWN INDICATION
     Dosage: 2.5  /-1.6 MG/DAY
     Route: 065

REACTIONS (7)
  - Akathisia [Unknown]
  - Weight increased [Unknown]
  - Dystonia [Unknown]
  - Muscular weakness [Unknown]
  - Catatonia [Unknown]
  - Extrapyramidal disorder [Unknown]
  - Body mass index increased [Unknown]
